FAERS Safety Report 25960977 (Version 1)
Quarter: 2025Q4

REPORT INFORMATION
  Report Type: Spontaneous
  Country: TW (occurrence: TW)
  Receive Date: 20251027
  Receipt Date: 20251027
  Transmission Date: 20260118
  Serious: Yes (Hospitalization)
  Sender: PHARMAESSENTIA
  Company Number: TW-PHARMAESSENTIA CORPORATION-TW-2025-PEC-008462

PATIENT

DRUGS (35)
  1. BESREMI [Suspect]
     Active Substance: ROPEGINTERFERON ALFA-2B-NJFT
     Indication: Myelofibrosis
     Dosage: 250 MCG, Q2W
     Route: 058
     Dates: start: 20250314
  2. BESREMI [Suspect]
     Active Substance: ROPEGINTERFERON ALFA-2B-NJFT
     Dosage: 250 MCG, Q2W
     Route: 058
     Dates: start: 20250328
  3. BESREMI [Suspect]
     Active Substance: ROPEGINTERFERON ALFA-2B-NJFT
     Dosage: 375 MCG, Q2W
     Route: 058
     Dates: start: 20250411, end: 20250411
  4. BESREMI [Suspect]
     Active Substance: ROPEGINTERFERON ALFA-2B-NJFT
     Dosage: 500 MCG, Q2W
     Route: 058
     Dates: start: 20250425, end: 20250425
  5. BESREMI [Suspect]
     Active Substance: ROPEGINTERFERON ALFA-2B-NJFT
     Dosage: 375 MCG, Q2W
     Route: 058
     Dates: start: 20250508, end: 20250508
  6. BESREMI [Suspect]
     Active Substance: ROPEGINTERFERON ALFA-2B-NJFT
     Dosage: 400 MCG, Q2W
     Route: 058
     Dates: start: 20250523, end: 20250523
  7. BESREMI [Suspect]
     Active Substance: ROPEGINTERFERON ALFA-2B-NJFT
     Dosage: 500 MCG, EVERY 3 WEEKS
     Route: 058
     Dates: start: 20250605, end: 20250815
  8. BESREMI [Suspect]
     Active Substance: ROPEGINTERFERON ALFA-2B-NJFT
     Dosage: 500 MCG, EVERY 3 WEEKS
     Route: 058
     Dates: start: 20250627
  9. BESREMI [Suspect]
     Active Substance: ROPEGINTERFERON ALFA-2B-NJFT
     Dosage: 500 MCG, EVERY 3 WEEKS
     Route: 058
     Dates: start: 20250902
  10. ASPIRIN [Concomitant]
     Active Substance: ASPIRIN
     Indication: Thrombosis prophylaxis
     Dosage: 1 DOSAGE FORM, QD
     Route: 048
  11. Acetal [Concomitant]
     Indication: Injection related reaction
     Dosage: 500 MG, 1# PO PRN
     Route: 048
  12. AUGMENTIN [Concomitant]
     Active Substance: AMOXICILLIN\CLAVULANATE POTASSIUM
     Indication: Cough
     Dosage: 1 GRAM, 1# PO BID
     Route: 048
     Dates: start: 20250514
  13. AUGMENTIN [Concomitant]
     Active Substance: AMOXICILLIN\CLAVULANATE POTASSIUM
     Indication: Oropharyngeal pain
  14. DICLOFENAC [Concomitant]
     Active Substance: DICLOFENAC
     Indication: Pyrexia
     Dosage: 50 MILLIGRAM, 1# PO TID
     Route: 048
     Dates: start: 20250801, end: 20250808
  15. DICLOFENAC [Concomitant]
     Active Substance: DICLOFENAC
     Indication: Injection site pain
  16. Brown mixture [Concomitant]
     Indication: Antitussive therapy
     Dosage: 10ML BID+HS
     Dates: start: 20250801, end: 20250808
  17. Brown mixture [Concomitant]
     Indication: Productive cough
  18. SULFAMETHOXAZOLE\TRIMETHOPRIM [Concomitant]
     Active Substance: SULFAMETHOXAZOLE\TRIMETHOPRIM
     Indication: Pneumonia
     Dosage: 2 DOSAGE FORM, BID
     Route: 048
     Dates: start: 20250801, end: 20250807
  19. SULFAMETHOXAZOLE\TRIMETHOPRIM [Concomitant]
     Active Substance: SULFAMETHOXAZOLE\TRIMETHOPRIM
     Dosage: 1 DOSAGE FORM, QD
     Route: 048
     Dates: start: 20250808, end: 20250906
  20. SULFAMETHOXAZOLE\TRIMETHOPRIM [Concomitant]
     Active Substance: SULFAMETHOXAZOLE\TRIMETHOPRIM
     Dosage: 1 DOSAGE FORM, QD
     Route: 048
     Dates: start: 20250906, end: 20250930
  21. SULFAMETHOXAZOLE\TRIMETHOPRIM [Concomitant]
     Active Substance: SULFAMETHOXAZOLE\TRIMETHOPRIM
     Dosage: 1 DOSAGE FORM, QD
     Route: 048
     Dates: start: 20250930
  22. Febuton [Concomitant]
     Indication: Hyperuricaemia
     Dosage: 80 MILLIGRAM, 1# PO QD
     Route: 048
     Dates: start: 20250801, end: 20250808
  23. OLMESARTAN [Concomitant]
     Active Substance: OLMESARTAN
     Indication: Hypertension
     Dosage: 20 MILLIGRAM, 1# PO QD
     Route: 048
     Dates: start: 20250801, end: 20250808
  24. PREDNISOLONE [Concomitant]
     Active Substance: PREDNISOLONE
     Indication: Pneumonia
     Dosage: 5 MILLIGRAM, 1# PO BID
     Route: 048
     Dates: start: 20250801, end: 20250808
  25. NEXIUM [Concomitant]
     Active Substance: ESOMEPRAZOLE MAGNESIUM
     Indication: Gastrointestinal disorder
     Dosage: 40 MILLIGRAM, 1# PO QDAC
     Route: 048
     Dates: start: 20250801, end: 20250808
  26. JARDIANCE [Concomitant]
     Active Substance: EMPAGLIFLOZIN
     Indication: Diabetes mellitus
     Dosage: 1 DOSAGE FORM, BID
     Route: 048
     Dates: start: 20250801, end: 20250808
  27. BISOPROLOL [Concomitant]
     Active Substance: BISOPROLOL
     Indication: Hypertension
     Dosage: 5 MILLIGRAM, 1# PO QD
     Route: 048
     Dates: start: 20250801, end: 20250808
  28. LEVOFLOXACIN [Concomitant]
     Active Substance: LEVOFLOXACIN
     Indication: Pneumonia
     Dosage: 750 MILLIGRAM, 1# PO QD
     Route: 048
     Dates: start: 20250801, end: 20250808
  29. Taita no.5 [Concomitant]
     Indication: Decreased appetite
     Dosage: 400ML 1BOT 3DAYS
     Dates: start: 20250808, end: 20250810
  30. Lyo povigent [Concomitant]
     Indication: Decreased appetite
     Dosage: 4ML 1VIAL IV 3DAYS
     Route: 042
     Dates: start: 20250808, end: 20250810
  31. XANAX [Concomitant]
     Active Substance: ALPRAZOLAM
     Indication: Sleep disorder
     Dosage: 0.5 MG, 1# PO HS
     Route: 048
     Dates: start: 20250812
  32. METOCLOPRAMIDE HYDROCHLORIDE [Concomitant]
     Active Substance: METOCLOPRAMIDE HYDROCHLORIDE
     Indication: Nausea
     Dosage: 3.84 MG, 1# PO TIDAC
     Route: 048
     Dates: start: 20250812
  33. METOCLOPRAMIDE HYDROCHLORIDE [Concomitant]
     Active Substance: METOCLOPRAMIDE HYDROCHLORIDE
     Indication: Vomiting
  34. FEBUXOSTAT [Concomitant]
     Active Substance: FEBUXOSTAT
     Indication: Hyperuricaemia
     Dosage: 0.5 DOSAGE FORM, QD (80 MG)
     Route: 048
  35. EMPAGLIFLOZIN\METFORMIN HYDROCHLORIDE [Concomitant]
     Active Substance: EMPAGLIFLOZIN\METFORMIN HYDROCHLORIDE
     Indication: Diabetes mellitus
     Dosage: 1 DOSAGE FORM, QD (12.5/850 MG)
     Route: 048
     Dates: start: 20250930

REACTIONS (9)
  - Clostridium difficile colitis [Not Recovered/Not Resolved]
  - Haemoglobin decreased [Not Recovered/Not Resolved]
  - Oxygen saturation decreased [Not Recovered/Not Resolved]
  - Nocturia [Not Recovered/Not Resolved]
  - Asthenia [Not Recovered/Not Resolved]
  - Dyspnoea [Not Recovered/Not Resolved]
  - Decreased appetite [Not Recovered/Not Resolved]
  - Pyrexia [Unknown]
  - Dizziness [Not Recovered/Not Resolved]

NARRATIVE: CASE EVENT DATE: 20250904
